FAERS Safety Report 5082958-3 (Version None)
Quarter: 2006Q3

REPORT INFORMATION
  Report Type: 
  Country: None (occurrence: None)
  Receive Date: 20060814
  Receipt Date: 20060726
  Transmission Date: 20061208
  Serious: Yes (Hospitalization)
  Sender: FDA-Public Use
  Company Number: 219110

PATIENT
  Age: 52 Year
  Sex: Male
  Weight: 67.8 kg

DRUGS (15)
  1. AVASTIN [Suspect]
     Indication: COLON CANCER
     Dosage: 362.5 MG, Q2W, INTRAVENOUS
     Route: 042
     Dates: start: 20050601
  2. OXALIPLATIN [Suspect]
     Indication: COLON CANCER
     Dosage: SEE IMAGE
     Route: 042
     Dates: start: 20050601
  3. FLUOROURACIL [Suspect]
     Indication: COLON CANCER
     Dosage: SEE IMAGE
     Route: 042
     Dates: start: 20050601
  4. LEUCOVORIN CALCIUM [Suspect]
     Indication: COLON CANCER
     Dosage: 350 MG, Q2W, INTRAVENOUS
     Route: 042
     Dates: start: 20050601
  5. GRANISETRON (GRANISETRON HYDROCHLORIDE) [Concomitant]
  6. DEXAMETHASONE [Concomitant]
  7. DOMPERIDONE [Concomitant]
  8. SLOW-K [Concomitant]
  9. THIAMINE (THIAMINE HYDROCHLORIDE) [Concomitant]
  10. VITAMIN B NOS [Concomitant]
  11. PENTASA [Concomitant]
  12. TRAMADOL HCL [Concomitant]
  13. ACETAMINOPHEN [Concomitant]
  14. FERROUS SULFATE TAB [Concomitant]
  15. CEFTRIAXONE [Concomitant]

REACTIONS (7)
  - DEHYDRATION [None]
  - DIARRHOEA [None]
  - FEBRILE NEUTROPENIA [None]
  - ORTHOSTATIC HYPOTENSION [None]
  - PHARYNGOLARYNGEAL PAIN [None]
  - RENAL FAILURE ACUTE [None]
  - TACHYCARDIA [None]
